FAERS Safety Report 17717410 (Version 1)
Quarter: 2020Q2

REPORT INFORMATION
  Report Type: Spontaneous
  Country: US (occurrence: US)
  Receive Date: 20200428
  Receipt Date: 20200428
  Transmission Date: 20200714
  Serious: Yes (Other)
  Sender: FDA-Public Use
  Company Number: US-PFIZER INC-2020167139

PATIENT
  Age: 40 Year
  Sex: Female
  Weight: 63.05 kg

DRUGS (2)
  1. CHANTIX [Suspect]
     Active Substance: VARENICLINE TARTRATE
     Dosage: 1 DF, 1X/DAY (ONCE A DAY)
  2. CHANTIX [Suspect]
     Active Substance: VARENICLINE TARTRATE
     Indication: SMOKING CESSATION THERAPY
     Dosage: 1 DF, 2X/DAY (SHE TOOK THE CHANTIX WITH FOOD AND THEN ALSO TOOK THE CHANTIX AT NIGHT)
     Dates: start: 2015

REACTIONS (3)
  - Nausea [Recovered/Resolved]
  - Abnormal dreams [Unknown]
  - Atrial fibrillation [Unknown]

NARRATIVE: CASE EVENT DATE: 2015
